FAERS Safety Report 19684796 (Version 1)
Quarter: 2021Q3

REPORT INFORMATION
  Report Type: Spontaneous
  Country: US (occurrence: US)
  Receive Date: 20210810
  Receipt Date: 20210810
  Transmission Date: 20211014
  Serious: No
  Sender: FDA-Public Use
  Company Number: None

PATIENT

DRUGS (2)
  1. METHYLERGONOVINE MALEATE. [Suspect]
     Active Substance: METHYLERGONOVINE MALEATE
     Route: 030
  2. CARBOPROST TROMETHAMINE [Suspect]
     Active Substance: CARBOPROST TROMETHAMINE
     Route: 030

REACTIONS (7)
  - Transcription medication error [None]
  - Hypertension [None]
  - Product prescribing issue [None]
  - Product selection error [None]
  - Tachycardia [None]
  - Blood pressure systolic increased [None]
  - Contraindicated product administered [None]
